FAERS Safety Report 9886677 (Version 2)
Quarter: 2014Q3

REPORT INFORMATION
  Report Type: Spontaneous
  Country: US (occurrence: US)
  Receive Date: 20140210
  Receipt Date: 20140711
  Transmission Date: 20150326
  Serious: Yes (Hospitalization, Other)
  Sender: FDA-Public Use
  Company Number: US-009507513-1402USA004331

PATIENT
  Sex: Female

DRUGS (1)
  1. NUVARING [Suspect]
     Active Substance: ETHINYL ESTRADIOL\ETONOGESTREL
     Dosage: UNK
     Route: 067
     Dates: start: 20121101, end: 20130527

REACTIONS (4)
  - Pulmonary embolism [Unknown]
  - Drug dependence [Unknown]
  - Depression [Unknown]
  - Bronchitis [Unknown]

NARRATIVE: CASE EVENT DATE: 20130621
